FAERS Safety Report 5054997-X (Version None)
Quarter: 2006Q3

REPORT INFORMATION
  Report Type: 
  Country: None (occurrence: None)
  Receive Date: 20060719
  Receipt Date: 20060704
  Transmission Date: 20061208
  Serious: Yes (Other)
  Sender: FDA-Public Use
  Company Number: JP-GLAXOSMITHKLINE-B0430464A

PATIENT
  Age: 65 Year
  Sex: Female

DRUGS (2)
  1. AMOXICILLIN [Suspect]
     Indication: HELICOBACTER INFECTION
     Dosage: 2000MG PER DAY
     Route: 048
  2. RABEPRAZOLE SODIUM [Concomitant]
     Indication: HELICOBACTER INFECTION
     Dosage: 40MG PER DAY
     Route: 048

REACTIONS (7)
  - ABDOMINAL PAIN [None]
  - C-REACTIVE PROTEIN INCREASED [None]
  - DIARRHOEA [None]
  - ENTEROCOLITIS HAEMORRHAGIC [None]
  - MELAENA [None]
  - OEDEMA [None]
  - WHITE BLOOD CELL COUNT INCREASED [None]
